FAERS Safety Report 16790559 (Version 1)
Quarter: 2019Q3

REPORT INFORMATION
  Report Type: Spontaneous
  Country: CN (occurrence: CN)
  Receive Date: 20190910
  Receipt Date: 20190910
  Transmission Date: 20191005
  Serious: Yes (Other)
  Sender: FDA-Public Use
  Company Number: CN-CMP PHARMA-2019CMP00019

PATIENT
  Age: 3 Day
  Sex: Male
  Weight: 2.26 kg

DRUGS (7)
  1. HYDROCORTISONE. [Suspect]
     Active Substance: HYDROCORTISONE
     Indication: SEPTIC SHOCK
  2. DOPAMINE [Concomitant]
     Active Substance: DOPAMINE HYDROCHLORIDE
     Indication: HYPOTENSION
     Route: 065
  3. NITRIC OXIDE. [Concomitant]
     Active Substance: NITRIC OXIDE
     Indication: NEWBORN PERSISTENT PULMONARY HYPERTENSION
  4. SURFACTANT [Concomitant]
     Dosage: 2 DOSES
     Route: 065
  5. HYDROCORTISONE. [Suspect]
     Active Substance: HYDROCORTISONE
     Indication: CIRCULATORY COLLAPSE
     Dosage: 2 MG/KG Q8H FOR FIRST 3 DAYS AND THEN WEANED GRADUALLY OVER A PERIOD OF 5 DAYS
     Route: 042
  6. FLUIDS [Concomitant]
     Active Substance: UNSPECIFIED INGREDIENT
     Indication: HYPOTENSION
     Route: 065
  7. EPINEPHRINE. [Concomitant]
     Active Substance: EPINEPHRINE
     Indication: HYPOTENSION
     Route: 065

REACTIONS (4)
  - Hypertrophic cardiomyopathy [Recovered/Resolved]
  - Hypokalaemia [Recovered/Resolved]
  - Cardiac hypertrophy [Recovered/Resolved]
  - Hyperbilirubinaemia [Recovered/Resolved]
